FAERS Safety Report 15471264 (Version 1)
Quarter: 2018Q4

REPORT INFORMATION
  Report Type: Report from Study
  Country: US (occurrence: US)
  Receive Date: 20181006
  Receipt Date: 20181006
  Transmission Date: 20190205
  Serious: No
  Sender: FDA-Public Use
  Company Number: PHEH2018US040950

PATIENT
  Sex: Female

DRUGS (2)
  1. AFINITOR DISPERZ [Suspect]
     Active Substance: EVEROLIMUS
     Indication: ASTROCYTOMA, LOW GRADE
     Dosage: 2 MG, QD
     Route: 048
     Dates: start: 20120121
  2. AFINITOR DISPERZ [Suspect]
     Active Substance: EVEROLIMUS
     Dosage: 1 MG, UNK
     Route: 065

REACTIONS (3)
  - Hypophagia [Unknown]
  - Stomatitis [Unknown]
  - Discomfort [Unknown]
